FAERS Safety Report 8119745-5 (Version None)
Quarter: 2012Q1

REPORT INFORMATION
  Report Type: 
  Country: None (occurrence: None)
  Receive Date: 20120207
  Receipt Date: 20120131
  Transmission Date: 20120608
  Serious: Yes (Other)
  Sender: FDA-Public Use
  Company Number: DE-PFIZER INC-2012013890

PATIENT
  Age: 75 Year
  Sex: Male
  Weight: 78.6 kg

DRUGS (19)
  1. PREDNISOLONE [Concomitant]
     Indication: FISTULA
  2. FINASTERIDE [Concomitant]
     Dosage: 5 MG, UNK
  3. AGIOCUR [Concomitant]
  4. CRATAEGUS [Concomitant]
     Dosage: 450 MG, 2X/DAY
  5. OMEPRAZOLE [Concomitant]
     Dosage: 20 MG, 2X/DAY
  6. TOVIAZ [Suspect]
     Indication: URINARY TRACT PAIN
     Dosage: 4 MG,/DAY
     Dates: start: 20111212, end: 20120110
  7. MOXONIDINE [Concomitant]
     Dosage: 4 MG, 2X/DAY
  8. LERCANIDIPINE [Concomitant]
  9. MESALAMINE [Concomitant]
  10. LOPERAMIDE [Concomitant]
     Indication: DIARRHOEA
  11. LOMOTIL [Concomitant]
     Indication: DIARRHOEA
  12. PENTAERYTHRITOL TETRANITRATE [Concomitant]
     Dosage: UNK
  13. PREDNISOLONE [Concomitant]
     Indication: COLONIC STENOSIS
     Dosage: 32.5 MG, UNK
  14. TAMSULOSIN [Concomitant]
     Dosage: 0.4 MG, 2X/DAY
  15. RAMIPRIL [Concomitant]
     Indication: HYPERTENSION
     Dosage: 5 MG, 2X/DAY
  16. CALCIUM WITH VITAMIN D [Concomitant]
     Indication: OSTEOPOROSIS
  17. CARVEDILOL [Concomitant]
     Indication: HYPERTENSION
     Dosage: 6.25 MG, 4X/DAY
  18. TOVIAZ [Suspect]
     Indication: CROHN'S DISEASE
  19. DICLOFENAC [Concomitant]

REACTIONS (2)
  - INTRAOCULAR PRESSURE INCREASED [None]
  - GASTROOESOPHAGEAL REFLUX DISEASE [None]
